FAERS Safety Report 6003220-8 (Version None)
Quarter: 2008Q4

REPORT INFORMATION
  Report Type: 
  Country: None (occurrence: None)
  Receive Date: 20081215
  Receipt Date: 20081215
  Transmission Date: 20090506
  Serious: Yes (Hospitalization)
  Sender: FDA-Public Use
  Company Number: None

PATIENT
  Sex: Male
  Weight: 114 kg

DRUGS (2)
  1. OXALIPLATIN [Suspect]
     Indication: PROSTATE CANCER
     Dosage: 120 MG/M^2 Q 21 DAYS IV
     Route: 042
     Dates: start: 20081104
  2. POMETREXED [Suspect]
     Indication: PROSTATE CANCER
     Dosage: 500 MG/M^2 Q 21 DAYS IV
     Route: 042
     Dates: start: 20081104

REACTIONS (6)
  - BACK PAIN [None]
  - DRUG INEFFECTIVE [None]
  - METASTASES TO SPINE [None]
  - OSTEOSCLEROSIS [None]
  - RESORPTION BONE INCREASED [None]
  - SPINAL COMPRESSION FRACTURE [None]
